FAERS Safety Report 12937424 (Version 5)
Quarter: 2021Q2

REPORT INFORMATION
  Report Type: Spontaneous
  Country: US (occurrence: US)
  Receive Date: 20161114
  Receipt Date: 20210526
  Transmission Date: 20210716
  Serious: No
  Sender: FDA-Public Use
  Company Number: US-PFIZER INC-2016523768

PATIENT
  Age: 72 Year
  Sex: Female

DRUGS (1)
  1. PREMARIN [Suspect]
     Active Substance: ESTROGENS, CONJUGATED
     Indication: MENOPAUSAL DISORDER
     Dosage: 0.625 MG, DAILY
     Route: 048
     Dates: start: 20210112

REACTIONS (3)
  - Ear discomfort [Unknown]
  - Mood altered [Unknown]
  - Illness [Unknown]
